FAERS Safety Report 14417110 (Version 5)
Quarter: 2019Q4

REPORT INFORMATION
  Report Type: Spontaneous
  Country: US (occurrence: US)
  Receive Date: 20180122
  Receipt Date: 20191108
  Transmission Date: 20200122
  Serious: Yes (Hospitalization)
  Sender: FDA-Public Use
  Company Number: US-PFIZER INC-2018026793

PATIENT
  Age: 36 Year
  Sex: Female
  Weight: 89.81 kg

DRUGS (12)
  1. OXYCODONE [Suspect]
     Active Substance: OXYCODONE
     Indication: PAIN
     Dosage: 10 MG, UNK
  2. DULOXETINE. [Concomitant]
     Active Substance: DULOXETINE
     Dosage: 30 MG, 2X/DAY
     Dates: start: 201802
  3. LYRICA [Suspect]
     Active Substance: PREGABALIN
     Dosage: UNK
     Route: 048
     Dates: end: 201804
  4. LYRICA [Suspect]
     Active Substance: PREGABALIN
     Dosage: 900 MG, UNK (OR POSSIBLY MORE)
     Route: 048
     Dates: start: 201711
  5. LYRICA [Suspect]
     Active Substance: PREGABALIN
     Indication: ACUTE POLYNEUROPATHY
     Dosage: 300 MG, TWICE A DAY (EVERY 12 HOURS)
     Route: 048
  6. OXYCODONE [Suspect]
     Active Substance: OXYCODONE
     Indication: NEURALGIA
     Dosage: 15 MG, UNK
  7. OXYCODONE [Suspect]
     Active Substance: OXYCODONE
     Indication: GUILLAIN-BARRE SYNDROME
  8. OXYCODONE [Suspect]
     Active Substance: OXYCODONE
     Indication: NEUROPATHY PERIPHERAL
     Dosage: 2.5 MG, 3X/DAY, (TID)
     Dates: start: 201710
  9. LYRICA [Suspect]
     Active Substance: PREGABALIN
     Indication: GUILLAIN-BARRE SYNDROME
     Dosage: 25 MG, 2X/DAY
     Route: 048
     Dates: start: 201711
  10. LYRICA [Suspect]
     Active Substance: PREGABALIN
     Dosage: 150 MG, 2X/DAY
     Route: 048
     Dates: start: 201710, end: 201905
  11. OXYCODONE [Suspect]
     Active Substance: OXYCODONE
     Indication: MYALGIA
     Dosage: 30 MG, 3X/DAY
     Dates: start: 201710
  12. LYRICA [Suspect]
     Active Substance: PREGABALIN
     Indication: DIABETIC NEUROPATHY
     Dosage: 150 MG, 2X/DAY (THREE CAPSULES TWICE A DAY)
     Route: 048

REACTIONS (7)
  - Weight decreased [Unknown]
  - Drug ineffective [Not Recovered/Not Resolved]
  - Paranoia [Recovered/Resolved]
  - Hallucination [Recovered/Resolved]
  - Prescribed overdose [Recovered/Resolved]
  - Fear [Recovered/Resolved]
  - Amnesia [Recovered/Resolved]

NARRATIVE: CASE EVENT DATE: 201710
